FAERS Safety Report 23282357 (Version 1)
Quarter: 2023Q4

REPORT INFORMATION
  Report Type: Spontaneous
  Country: JP (occurrence: JP)
  Receive Date: 20231211
  Receipt Date: 20231211
  Transmission Date: 20240109
  Serious: Yes (Other)
  Sender: FDA-Public Use
  Company Number: JP-PFIZER INC-PV202300193811

PATIENT
  Age: 4 Decade
  Sex: Male

DRUGS (1)
  1. SOMATROPIN [Suspect]
     Active Substance: SOMATROPIN
     Indication: Hypopituitarism
     Dosage: UNK

REACTIONS (4)
  - Non-alcoholic steatohepatitis [Unknown]
  - Hepatic cirrhosis [Unknown]
  - Hepatopulmonary syndrome [Unknown]
  - Intentional product misuse [Unknown]
